FAERS Safety Report 8037208-2 (Version None)
Quarter: 2012Q1

REPORT INFORMATION
  Report Type: 
  Country: None (occurrence: None)
  Receive Date: 20120109
  Receipt Date: 20111226
  Transmission Date: 20120608
  Serious: Yes (Other)
  Sender: FDA-Public Use
  Company Number: 1152691

PATIENT
  Sex: Female

DRUGS (2)
  1. (CORTICOSTEROIDS) [Suspect]
     Indication: HYPERCALCAEMIA
  2. FUROSEMIDE [Suspect]
     Indication: HYPERCALCAEMIA

REACTIONS (3)
  - CONDITION AGGRAVATED [None]
  - NEPHROCALCINOSIS [None]
  - CAESAREAN SECTION [None]
